FAERS Safety Report 25217739 (Version 3)
Quarter: 2025Q4

REPORT INFORMATION
  Report Type: Report from Study
  Country: US (occurrence: US)
  Receive Date: 20250420
  Receipt Date: 20251114
  Transmission Date: 20260117
  Serious: Yes (Hospitalization)
  Sender: ABBVIE
  Company Number: US-ABBVIE-6180422

PATIENT
  Age: 66 Year
  Sex: Female

DRUGS (3)
  1. RINVOQ [Suspect]
     Active Substance: UPADACITINIB
     Indication: Rheumatoid arthritis
     Route: 048
  2. RINVOQ [Suspect]
     Active Substance: UPADACITINIB
     Indication: Rheumatoid arthritis
     Route: 048
     Dates: start: 20220401
  3. OZEMPIC [Suspect]
     Active Substance: SEMAGLUTIDE
     Indication: Product used for unknown indication
     Route: 065

REACTIONS (10)
  - Nephrolithiasis [Not Recovered/Not Resolved]
  - Back pain [Unknown]
  - Gastroenteritis viral [Recovering/Resolving]
  - Feeling abnormal [Unknown]
  - Herpes zoster [Not Recovered/Not Resolved]
  - Escherichia urinary tract infection [Recovering/Resolving]
  - Fatigue [Not Recovered/Not Resolved]
  - Muscle spasms [Unknown]
  - Pneumonia klebsiella [Recovering/Resolving]
  - Proteus infection [Recovering/Resolving]

NARRATIVE: CASE EVENT DATE: 20250101
